FAERS Safety Report 9650697 (Version 2)
Quarter: 2013Q4

REPORT INFORMATION
  Report Type: Spontaneous
  Country: US (occurrence: US)
  Receive Date: 20131029
  Receipt Date: 20131030
  Transmission Date: 20140711
  Serious: No
  Sender: FDA-Public Use
  Company Number: US-009507513-1310USA012956

PATIENT
  Age: 17 Year
  Sex: Female
  Weight: 77.98 kg

DRUGS (1)
  1. IMPLANON [Suspect]
     Indication: CONTRACEPTION
     Dosage: 1 DF, EVERY 3 YEARS
     Route: 059
     Dates: start: 201212

REACTIONS (3)
  - Implant site pain [Unknown]
  - Device kink [Unknown]
  - Device breakage [Unknown]
